FAERS Safety Report 7737190-9 (Version None)
Quarter: 2011Q3

REPORT INFORMATION
  Report Type: 
  Country: None (occurrence: None)
  Receive Date: 20110902
  Receipt Date: 20110825
  Transmission Date: 20111222
  Serious: Yes (Hospitalization)
  Sender: FDA-Public Use
  Company Number: 2011MA012610

PATIENT
  Age: 87 Year
  Sex: Male
  Weight: 83.9154 kg

DRUGS (5)
  1. DIGOXIN [Suspect]
     Indication: ATRIAL FIBRILLATION
     Dosage: 0.250 MG;QD
     Dates: start: 20071104, end: 20080414
  2. FUROSEMIDE [Concomitant]
  3. WARFARIN SODIUM [Concomitant]
  4. LISINOPRIL [Concomitant]
  5. DIGOXIN [Suspect]
     Indication: ATRIAL FIBRILLATION
     Dosage: 0.250 MG;QD
     Dates: start: 20080505, end: 20080512

REACTIONS (7)
  - ANAEMIA [None]
  - GASTROINTESTINAL HAEMORRHAGE [None]
  - CARDIOMYOPATHY [None]
  - SICK SINUS SYNDROME [None]
  - TOXICITY TO VARIOUS AGENTS [None]
  - PLEURAL EFFUSION [None]
  - BRADYCARDIA [None]
